FAERS Safety Report 20807238 (Version 1)
Quarter: 2022Q2

REPORT INFORMATION
  Report Type: Spontaneous
  Country: RU (occurrence: RU)
  Receive Date: 20220510
  Receipt Date: 20220510
  Transmission Date: 20220720
  Serious: Yes (Other)
  Sender: FDA-Public Use
  Company Number: RU-SCIEGENP-2022SCLIT00363

PATIENT
  Age: 57 Year
  Sex: Female

DRUGS (7)
  1. QUETIAPINE [Suspect]
     Active Substance: QUETIAPINE
     Indication: Bipolar disorder
     Route: 065
     Dates: start: 2018
  2. QUETIAPINE [Suspect]
     Active Substance: QUETIAPINE
     Indication: Depression
  3. OLANZAPINE [Suspect]
     Active Substance: OLANZAPINE
     Indication: Psychiatric symptom
     Route: 065
     Dates: start: 201712
  4. OLANZAPINE [Suspect]
     Active Substance: OLANZAPINE
     Indication: Bipolar disorder
     Route: 065
     Dates: start: 2018
  5. OLANZAPINE [Suspect]
     Active Substance: OLANZAPINE
     Indication: Depression
  6. PHENAZEPAM [Suspect]
     Active Substance: PHENAZEPAM
     Indication: Bipolar disorder
     Route: 042
     Dates: start: 2018
  7. PHENAZEPAM [Suspect]
     Active Substance: PHENAZEPAM
     Indication: Depression

REACTIONS (2)
  - Autoimmune thyroiditis [Unknown]
  - Hyperprolactinaemia [Unknown]

NARRATIVE: CASE EVENT DATE: 20180101
